FAERS Safety Report 4364108-1 (Version None)
Quarter: 2004Q2

REPORT INFORMATION
  Report Type: 
  Country: None (occurrence: None)
  Receive Date: 20040525
  Receipt Date: 20040513
  Transmission Date: 20050107
  Serious: Yes (Hospitalization, Other)
  Sender: FDA-Public Use
  Company Number: DE-BRISTOL-MYERS SQUIBB COMPANY-12585527

PATIENT
  Age: 57 Year
  Sex: Female
  Weight: 77 kg

DRUGS (2)
  1. IFOSFAMIDE [Suspect]
     Indication: SARCOMA
     Dosage: THERAPY DATES: 03-APR TO 05-APR-2004; WITHDRAWN ON 08-APR-2004
     Route: 042
     Dates: start: 20040403, end: 20040405
  2. CAELYX [Suspect]
     Indication: SARCOMA
     Route: 042
     Dates: start: 20040403, end: 20040403

REACTIONS (2)
  - PSYCHOTIC DISORDER [None]
  - TOXIC INDUCED ENCEPHALOPATHY [None]
